FAERS Safety Report 23741129 (Version 1)
Quarter: 2024Q2

REPORT INFORMATION
  Report Type: Report from Study
  Country: NL (occurrence: NL)
  Receive Date: 20240415
  Receipt Date: 20240415
  Transmission Date: 20240716
  Serious: Yes (Other)
  Sender: FDA-Public Use
  Company Number: NL-GTI-000230

PATIENT
  Age: 27 Month
  Sex: Male

DRUGS (4)
  1. PREDNISONE [Suspect]
     Active Substance: PREDNISONE
     Indication: Prophylaxis against graft versus host disease
     Route: 065
  2. FLUDARABINE [Suspect]
     Active Substance: FLUDARABINE PHOSPHATE
     Indication: Prophylaxis against graft versus host disease
     Route: 065
  3. CYCLOSPORINE [Suspect]
     Active Substance: CYCLOSPORINE
     Indication: Prophylaxis against graft versus host disease
     Dosage: 200-250 MG/L/DAY
     Route: 065
  4. BUSULFAN [Suspect]
     Active Substance: BUSULFAN
     Indication: Prophylaxis against graft versus host disease
     Dosage: 90 MGXH/L
     Route: 065

REACTIONS (18)
  - Polyneuropathy [Unknown]
  - Disease progression [Unknown]
  - Cytomegalovirus infection reactivation [Unknown]
  - Acute graft versus host disease in skin [Unknown]
  - Guillain-Barre syndrome [Unknown]
  - Chronic inflammatory demyelinating polyradiculoneuropathy [Unknown]
  - Metachromatic leukodystrophy [Unknown]
  - Condition aggravated [Unknown]
  - Viral infection [Unknown]
  - Blood immunoglobulin G decreased [Unknown]
  - White matter lesion [Unknown]
  - Mucosal inflammation [Unknown]
  - Nystagmus [Unknown]
  - Muscle strength abnormal [Unknown]
  - Pyrexia [Unknown]
  - Vomiting [Unknown]
  - Exercise tolerance decreased [Unknown]
  - Muscular weakness [Unknown]
